FAERS Safety Report 10003949 (Version 1)
Quarter: 2014Q1

REPORT INFORMATION
  Report Type: Spontaneous
  Country: BR (occurrence: BR)
  Receive Date: 20140312
  Receipt Date: 20140312
  Transmission Date: 20141002
  Serious: Yes (Hospitalization, Other)
  Sender: FDA-Public Use
  Company Number: PHHY2014BR029247

PATIENT
  Age: 60 Year
  Sex: Male

DRUGS (1)
  1. DIOVAN HCT [Suspect]
     Indication: HYPERTENSION
     Dosage: 0.5 DF (VALS 160 MG, HYDR 12.5MG), DAILY
     Route: 048

REACTIONS (4)
  - Gastrointestinal stromal tumour [Recovering/Resolving]
  - Malaise [Unknown]
  - Hepatic neoplasm [Unknown]
  - Wrong technique in drug usage process [Unknown]
